FAERS Safety Report 9373715 (Version 2)
Quarter: 2013Q3

REPORT INFORMATION
  Report Type: Spontaneous
  Country: US (occurrence: US)
  Receive Date: 20130627
  Receipt Date: 20130725
  Transmission Date: 20140515
  Serious: Yes (Hospitalization, Other)
  Sender: FDA-Public Use
  Company Number: US-BAXTER-2013BAX023696

PATIENT
  Sex: Male

DRUGS (8)
  1. DIANEAL PD2 [Suspect]
     Indication: PERITONEAL DIALYSIS
     Route: 033
     Dates: start: 2012
  2. DIANEAL PD2 [Suspect]
     Route: 033
     Dates: start: 2013
  3. DIANEAL PD2 [Suspect]
     Indication: PERITONEAL DIALYSIS
     Route: 033
     Dates: start: 2012
  4. DIANEAL PD2 [Suspect]
     Route: 033
     Dates: start: 2013
  5. DIANEAL PD2 (ULTRABAG) [Suspect]
     Indication: PERITONEAL DIALYSIS
     Route: 033
  6. DIANEAL PD2 (ULTRABAG) [Suspect]
     Route: 033
     Dates: start: 2013
  7. DIANEAL PD2 (ULTRABAG) [Suspect]
     Indication: PERITONEAL DIALYSIS
     Route: 033
  8. DIANEAL PD2 (ULTRABAG) [Suspect]
     Route: 033
     Dates: start: 2013

REACTIONS (2)
  - Renal cell carcinoma [Recovering/Resolving]
  - Renal cyst [Recovered/Resolved]
